FAERS Safety Report 25595100 (Version 1)
Quarter: 2025Q3

REPORT INFORMATION
  Report Type: Spontaneous
  Country: CN (occurrence: CN)
  Receive Date: 20250723
  Receipt Date: 20250723
  Transmission Date: 20251021
  Serious: Yes (Other)
  Sender: RANBAXY
  Company Number: CN-SUN PHARMACEUTICAL INDUSTRIES INC-2025R1-517795

PATIENT
  Age: 12 Year
  Sex: Female
  Weight: 59 kg

DRUGS (4)
  1. HYDROXYCHLOROQUINE [Suspect]
     Active Substance: HYDROXYCHLOROQUINE
     Indication: Systemic lupus erythematosus
     Dosage: 100 MILLIGRAM, BID
     Route: 048
  2. METHYLPREDNISOLONE [Suspect]
     Active Substance: METHYLPREDNISOLONE
     Indication: Systemic lupus erythematosus
     Route: 042
  3. METHYLPREDNISOLONE [Suspect]
     Active Substance: METHYLPREDNISOLONE
     Route: 042
  4. HUMAN IMMUNOGLOBULIN G [Suspect]
     Active Substance: HUMAN IMMUNOGLOBULIN G
     Indication: Systemic lupus erythematosus
     Route: 042

REACTIONS (3)
  - Drug ineffective [Unknown]
  - Lupus nephritis [Recovering/Resolving]
  - Thrombotic microangiopathy [Recovering/Resolving]
